FAERS Safety Report 6233764-5 (Version None)
Quarter: 2009Q2

REPORT INFORMATION
  Report Type: 
  Country: None (occurrence: None)
  Receive Date: 20090616
  Receipt Date: 20090616
  Transmission Date: 20091009
  Serious: Yes (Other)
  Sender: FDA-Public Use
  Company Number: None

PATIENT
  Age: 5 Year
  Sex: Female
  Weight: 19.5047 kg

DRUGS (2)
  1. SINGULAIR [Suspect]
     Indication: BRONCHIAL HYPERREACTIVITY
     Dosage: 5 MG ONCE PER DAY PO
     Route: 048
     Dates: start: 20090505, end: 20090608
  2. SINGULAIR [Suspect]
     Indication: COUGH
     Dosage: 5 MG ONCE PER DAY PO
     Route: 048
     Dates: start: 20090505, end: 20090608

REACTIONS (7)
  - ABNORMAL BEHAVIOUR [None]
  - CRYING [None]
  - MOOD ALTERED [None]
  - PSYCHOMOTOR HYPERACTIVITY [None]
  - SCREAMING [None]
  - SPEECH DISORDER [None]
  - THINKING ABNORMAL [None]
